APPROVED DRUG PRODUCT: WIDAPLIK
Active Ingredient: AMLODIPINE BESYLATE; INDAPAMIDE; TELMISARTAN
Strength: EQ 5MG BASE;2.5MG;40MG
Dosage Form/Route: TABLET;ORAL
Application: N219423 | Product #003
Applicant: AZURITY PHARMACEUTICALS INC
Approved: Jun 5, 2025 | RLD: Yes | RS: No | Type: DISCN

EXCLUSIVITY:
Code: NP | Date: Jun 5, 2028